FAERS Safety Report 14432508 (Version 3)
Quarter: 2018Q3

REPORT INFORMATION
  Report Type: Spontaneous
  Country: BR (occurrence: BR)
  Receive Date: 20180124
  Receipt Date: 20180730
  Transmission Date: 20181010
  Serious: Yes (Hospitalization, Other)
  Sender: FDA-Public Use
  Company Number: BR-JNJFOC-20180126601

PATIENT
  Age: 91 Year
  Sex: Male

DRUGS (10)
  1. XARELTO [Suspect]
     Active Substance: RIVAROXABAN
     Indication: ELDERLY
     Dosage: 1 TABLET EVERY OTHER DAY
     Route: 048
  2. XARELTO [Suspect]
     Active Substance: RIVAROXABAN
     Indication: BLOOD VISCOSITY ABNORMAL
     Route: 048
     Dates: start: 2016
  3. XARELTO [Suspect]
     Active Substance: RIVAROXABAN
     Indication: BLOOD VISCOSITY ABNORMAL
     Dosage: 1 TABLET EVERY OTHER DAY
     Route: 048
  4. XARELTO [Suspect]
     Active Substance: RIVAROXABAN
     Indication: ELDERLY
     Dosage: (10 MG TABLET ) HALF A TABLET EVERY DAY
     Route: 048
  5. XARELTO [Suspect]
     Active Substance: RIVAROXABAN
     Indication: ELDERLY
     Route: 048
     Dates: start: 2016
  6. XARELTO [Suspect]
     Active Substance: RIVAROXABAN
     Indication: CARDIOMEGALY
     Route: 048
     Dates: start: 2016
  7. XARELTO [Suspect]
     Active Substance: RIVAROXABAN
     Indication: CARDIOMEGALY
     Dosage: (10 MG TABLET ) HALF A TABLET EVERY DAY
     Route: 048
  8. DAFORIN [Concomitant]
     Active Substance: FLUOXETINE HYDROCHLORIDE
     Indication: DEPRESSION
     Route: 048
     Dates: start: 2017
  9. XARELTO [Suspect]
     Active Substance: RIVAROXABAN
     Indication: CARDIOMEGALY
     Dosage: 1 TABLET EVERY OTHER DAY
     Route: 048
  10. XARELTO [Suspect]
     Active Substance: RIVAROXABAN
     Indication: BLOOD VISCOSITY ABNORMAL
     Dosage: (10 MG TABLET ) HALF A TABLET EVERY DAY
     Route: 048

REACTIONS (6)
  - Off label use [Unknown]
  - Product use in unapproved indication [Unknown]
  - Skin irritation [Not Recovered/Not Resolved]
  - Skin haemorrhage [Not Recovered/Not Resolved]
  - Pruritus generalised [Not Recovered/Not Resolved]
  - Epistaxis [Recovered/Resolved]

NARRATIVE: CASE EVENT DATE: 201709
